FAERS Safety Report 15507054 (Version 4)
Quarter: 2018Q4

REPORT INFORMATION
  Report Type: Spontaneous
  Country: DE (occurrence: DE)
  Receive Date: 20181016
  Receipt Date: 20181123
  Transmission Date: 20190205
  Serious: Yes (Other)
  Sender: FDA-Public Use
  Company Number: PHHY2018DE124046

PATIENT
  Age: 50 Year
  Sex: Female
  Weight: 142 kg

DRUGS (12)
  1. RAMIPRIL. [Suspect]
     Active Substance: RAMIPRIL
     Indication: PRODUCT USED FOR UNKNOWN INDICATION
     Dosage: 1 ?G/L, QD (1X/DAY, 5, 1-0-0)
     Route: 065
  2. TIZANIDINE. [Suspect]
     Active Substance: TIZANIDINE
     Indication: PRODUCT USED FOR UNKNOWN INDICATION
     Dosage: 2 MG, Q12H
     Route: 065
  3. PREGABALIN. [Suspect]
     Active Substance: PREGABALIN
     Indication: PRODUCT USED FOR UNKNOWN INDICATION
     Dosage: (1-0-2), BID
     Route: 065
  4. LEVONORGESTREL AND ETHINYL ESTRADIOL [Suspect]
     Active Substance: ETHINYL ESTRADIOL\LEVONORGESTREL
     Indication: PRODUCT USED FOR UNKNOWN INDICATION
     Dosage: 0.15 MG, UNK
     Route: 065
     Dates: start: 20180501, end: 20180520
  5. TIZANIDINE. [Suspect]
     Active Substance: TIZANIDINE
     Dosage: 4 MG, QD (2 MG BID)
     Route: 065
  6. METOHEXAL [Suspect]
     Active Substance: METOPROLOL
     Indication: PRODUCT USED FOR UNKNOWN INDICATION
     Dosage: 1 DF, Q12H
     Route: 065
  7. METOHEXAL [Suspect]
     Active Substance: METOPROLOL
     Dosage: 2 ?G/L, QD (1 DF BID)
     Route: 065
  8. RAMIPRIL. [Suspect]
     Active Substance: RAMIPRIL
     Dosage: 1 DF, QD
     Route: 065
  9. FENTANYL. [Suspect]
     Active Substance: FENTANYL
     Dosage: UNK UNK, Q3D
     Route: 048
  10. PREGABALIN. [Suspect]
     Active Substance: PREGABALIN
     Dosage: UNK UNK, BID
     Route: 065
  11. FENTANYL. [Suspect]
     Active Substance: FENTANYL
     Indication: PRODUCT USED FOR UNKNOWN INDICATION
     Dosage: UNK, Q3D
     Route: 065
  12. PREGABALIN. [Suspect]
     Active Substance: PREGABALIN
     Dosage: 2 OT, QD
     Route: 065

REACTIONS (6)
  - Discomfort [Unknown]
  - Deep vein thrombosis [Unknown]
  - Muscular weakness [Unknown]
  - Peripheral swelling [Unknown]
  - Tension [Unknown]
  - Musculoskeletal stiffness [Unknown]

NARRATIVE: CASE EVENT DATE: 20180522
